FAERS Safety Report 8817091 (Version 1)
Quarter: 2012Q4

REPORT INFORMATION
  Report Type: Spontaneous
  Country: US (occurrence: None)
  Receive Date: 20121003
  Receipt Date: 20121003
  Transmission Date: 20130627
  Serious: No
  Sender: FDA-Public Use
  Company Number: None

PATIENT
  Age: 43 Year
  Sex: Female
  Weight: 68.04 kg

DRUGS (1)
  1. CLINDAMYCIN HCL 300 MG [Suspect]
     Indication: MASTITIS
     Route: 048
     Dates: start: 20120921, end: 20120927

REACTIONS (1)
  - Faecal incontinence [None]
